FAERS Safety Report 5083348-X (Version None)
Quarter: 2006Q3

REPORT INFORMATION
  Report Type: 
  Country: None (occurrence: None)
  Receive Date: 20060720
  Receipt Date: 20060516
  Transmission Date: 20061208
  Serious: Yes (Hospitalization, Other)
  Sender: FDA-Public Use
  Company Number: 2006065321

PATIENT
  Age: 52 Year
  Sex: Female
  Weight: 30.391 kg

DRUGS (1)
  1. CELEBREX [Suspect]
     Indication: ARTHRITIS
     Dosage: 200 (1 IN 1 D), ORAL
     Route: 048
     Dates: start: 19990701, end: 20030901

REACTIONS (3)
  - ARTERIAL OCCLUSIVE DISEASE [None]
  - DEPRESSION [None]
  - MYOCARDIAL INFARCTION [None]
